FAERS Safety Report 9880944 (Version 1)
Quarter: 2014Q1

REPORT INFORMATION
  Report Type: Spontaneous
  Country: US (occurrence: US)
  Receive Date: 20140207
  Receipt Date: 20140207
  Transmission Date: 20141002
  Serious: No
  Sender: FDA-Public Use
  Company Number: US-009507513-1402USA001874

PATIENT
  Age: 54 Year
  Sex: Female

DRUGS (1)
  1. AZASITE [Suspect]
     Indication: RHINORRHOEA
     Dosage: 1 GTT, BID FOR THE FIRST 7 DAYS
     Route: 031
     Dates: start: 20140129, end: 20140201

REACTIONS (2)
  - Eye irritation [Recovered/Resolved]
  - Drug dose omission [Unknown]
